FAERS Safety Report 7462204-3 (Version None)
Quarter: 2011Q2

REPORT INFORMATION
  Report Type: 
  Country: None (occurrence: None)
  Receive Date: 20110506
  Receipt Date: 20101220
  Transmission Date: 20111010
  Serious: Yes (Death, Hospitalization)
  Sender: FDA-Public Use
  Company Number: GB-BAYER-2011-021027

PATIENT
  Age: 68 Year
  Sex: Male

DRUGS (6)
  1. ATORVASTATIN [Concomitant]
     Indication: HYPERLIPIDAEMIA
  2. ATENOLOL [Concomitant]
     Indication: HYPERTENSION
  3. DICLOFENAC [Concomitant]
     Indication: PAIN
  4. THYROXINE [Concomitant]
     Indication: HYPOTHYROIDISM
  5. SORAFENIB (RAF KINASE INHIBITOR) [Suspect]
     Indication: METASTATIC RENAL CELL CARCINOMA
     Dosage: 400 MG, UNK
     Route: 048
     Dates: start: 20090911, end: 20091108
  6. TINZAPARIN SODIUM [Concomitant]
     Indication: ATRIAL FIBRILLATION
     Dosage: UNK
     Dates: start: 20090903

REACTIONS (3)
  - PLEURAL EFFUSION [None]
  - LETHARGY [None]
  - METASTATIC RENAL CELL CARCINOMA [None]
